FAERS Safety Report 4765804-4 (Version None)
Quarter: 2005Q3

REPORT INFORMATION
  Report Type: 
  Country: None (occurrence: None)
  Receive Date: 20050902
  Receipt Date: 20050825
  Transmission Date: 20060218
  Serious: Yes (Other)
  Sender: FDA-Public Use
  Company Number: HQWYE948816AUG05

PATIENT
  Age: 54 Year
  Sex: Male

DRUGS (1)
  1. EFFEXOR XR [Suspect]
     Indication: DEPRESSION
     Dosage: 75 MG 1X PER 1 DAY ORAL
     Route: 048
     Dates: start: 20050301

REACTIONS (3)
  - CATECHOLAMINES URINE INCREASED [None]
  - HYPERTENSION [None]
  - URINE SODIUM INCREASED [None]
